FAERS Safety Report 15169568 (Version 1)
Quarter: 2018Q3

REPORT INFORMATION
  Report Type: Report from Study
  Country: None (occurrence: US)
  Receive Date: 20180720
  Receipt Date: 20180720
  Transmission Date: 20181010
  Serious: Yes (Hospitalization, Other)
  Sender: FDA-Public Use
  Company Number: US-ABBVIE-17K-163-2112806-00

PATIENT
  Sex: Male

DRUGS (6)
  1. HUMIRA [Suspect]
     Active Substance: ADALIMUMAB
     Indication: CROHN^S DISEASE
     Dosage: DAY 15
     Route: 058
     Dates: start: 20170725, end: 20170725
  2. HUMIRA [Suspect]
     Active Substance: ADALIMUMAB
     Route: 058
     Dates: start: 201711
  3. HUMIRA [Suspect]
     Active Substance: ADALIMUMAB
     Indication: ANKYLOSING SPONDYLITIS
     Dosage: DAY 1
     Route: 058
     Dates: start: 20170712, end: 20170712
  4. HUMIRA [Suspect]
     Active Substance: ADALIMUMAB
     Route: 058
     Dates: start: 20170712, end: 201711
  5. AMLODIPINE [Concomitant]
     Active Substance: AMLODIPINE BESYLATE
     Indication: PRODUCT USED FOR UNKNOWN INDICATION
  6. RAMIPRIL. [Concomitant]
     Active Substance: RAMIPRIL
     Indication: PRODUCT USED FOR UNKNOWN INDICATION

REACTIONS (21)
  - Weight increased [Unknown]
  - Intestinal obstruction [Unknown]
  - Fatigue [Recovering/Resolving]
  - Neck pain [Unknown]
  - Intestinal obstruction [Recovered/Resolved]
  - Lethargy [Not Recovered/Not Resolved]
  - Arthralgia [Unknown]
  - Joint swelling [Recovered/Resolved]
  - Loss of personal independence in daily activities [Unknown]
  - Nasopharyngitis [Recovered/Resolved]
  - Back pain [Unknown]
  - Arthralgia [Unknown]
  - Viral infection [Unknown]
  - Ankylosing spondylitis [Recovered/Resolved]
  - Mobility decreased [Unknown]
  - Joint range of motion decreased [Recovering/Resolving]
  - Fatigue [Unknown]
  - Musculoskeletal stiffness [Not Recovered/Not Resolved]
  - Fall [Recovered/Resolved]
  - Paraesthesia [Unknown]
  - Herpes zoster [Recovered/Resolved]

NARRATIVE: CASE EVENT DATE: 2017
